FAERS Safety Report 10178299 (Version 1)
Quarter: 2014Q2

REPORT INFORMATION
  Report Type: Spontaneous
  Country: US (occurrence: US)
  Receive Date: 20140519
  Receipt Date: 20140519
  Transmission Date: 20141212
  Serious: No
  Sender: FDA-Public Use
  Company Number: US-009507513-1405USA006003

PATIENT
  Age: 70 Year
  Sex: Female

DRUGS (3)
  1. DULERA [Suspect]
     Indication: ASTHMA
     Dosage: 2 DF, BID
     Route: 055
     Dates: start: 20140424, end: 2014
  2. LEVOTHYROXINE SODIUM [Concomitant]
  3. VALTREX [Concomitant]

REACTIONS (1)
  - Herpes zoster [Not Recovered/Not Resolved]
